FAERS Safety Report 21521387 (Version 1)
Quarter: 2022Q4

REPORT INFORMATION
  Report Type: Report from Study
  Country: US (occurrence: US)
  Receive Date: 20221028
  Receipt Date: 20221028
  Transmission Date: 20230113
  Serious: No
  Sender: FDA-Public Use
  Company Number: US-ABBVIE-4131518

PATIENT
  Sex: Female

DRUGS (1)
  1. HUMIRA [Suspect]
     Active Substance: ADALIMUMAB
     Indication: Crohn^s disease
     Route: 058

REACTIONS (6)
  - Skin lesion [Unknown]
  - Fungal foot infection [Unknown]
  - Scleritis [Unknown]
  - Swollen tongue [Not Recovered/Not Resolved]
  - Skin infection [Unknown]
  - Acne [Unknown]

NARRATIVE: CASE EVENT DATE: 20190101
